FAERS Safety Report 12654815 (Version 1)
Quarter: 2016Q3

REPORT INFORMATION
  Report Type: Spontaneous
  Country: US (occurrence: None)
  Receive Date: 20160815
  Receipt Date: 20160815
  Transmission Date: 20161109
  Serious: Yes (Death, Hospitalization)
  Sender: FDA-Public Use
  Company Number: None

PATIENT
  Age: 62 Year
  Sex: Male
  Weight: 84.8 kg

DRUGS (2)
  1. LEUPROLIDE ACETATE. [Suspect]
     Active Substance: LEUPROLIDE ACETATE
     Dates: end: 20160714
  2. CASODEX [Suspect]
     Active Substance: BICALUTAMIDE
     Dates: end: 20160731

REACTIONS (1)
  - Cardiac death [None]

NARRATIVE: CASE EVENT DATE: 20160804
